FAERS Safety Report 16621323 (Version 1)
Quarter: 2019Q3

REPORT INFORMATION
  Report Type: Spontaneous
  Country: US (occurrence: US)
  Receive Date: 20190723
  Receipt Date: 20190723
  Transmission Date: 20191004
  Serious: No
  Sender: FDA-Public Use
  Company Number: US-OTSUKA-2018_035029

PATIENT
  Age: 52 Year
  Sex: Male

DRUGS (5)
  1. REXULTI [Suspect]
     Active Substance: BREXPIPRAZOLE
     Indication: DEPRESSION
     Dosage: 1 MG, QD
     Route: 065
     Dates: start: 2017, end: 201810
  2. TEMAZEPAM. [Concomitant]
     Active Substance: TEMAZEPAM
     Indication: NECK PAIN
     Dosage: UNK
     Route: 065
  3. NORVASC [Concomitant]
     Active Substance: AMLODIPINE BESYLATE
     Indication: BLOOD PRESSURE MEASUREMENT
     Dosage: UNK
     Route: 065
  4. ROBAXIN [Concomitant]
     Active Substance: METHOCARBAMOL
     Indication: NECK PAIN
     Dosage: UNK
     Route: 065
  5. DONEPEZIL. [Concomitant]
     Active Substance: DONEPEZIL
     Indication: MEMORY IMPAIRMENT
     Dosage: UNK
     Route: 065

REACTIONS (7)
  - Muscle spasms [Not Recovered/Not Resolved]
  - Blood glucose increased [Unknown]
  - Product dose omission [Unknown]
  - Blood potassium increased [Unknown]
  - Fatigue [Not Recovered/Not Resolved]
  - Blood cholesterol increased [Unknown]
  - Dyskinesia [Not Recovered/Not Resolved]

NARRATIVE: CASE EVENT DATE: 201810
